FAERS Safety Report 5143159-3 (Version None)
Quarter: 2006Q4

REPORT INFORMATION
  Report Type: 
  Country: None (occurrence: None)
  Receive Date: 20061031
  Receipt Date: 20061031
  Transmission Date: 20070319
  Serious: Yes (Life-Threatening, Hospitalization)
  Sender: FDA-Public Use
  Company Number: None

PATIENT
  Age: 87 Year
  Sex: Male
  Weight: 71.2 kg

DRUGS (1)
  1. MORPHINE [Suspect]

REACTIONS (3)
  - BRADYCARDIA [None]
  - DYSKINESIA [None]
  - SOMNOLENCE [None]
